FAERS Safety Report 6442323-0 (Version None)
Quarter: 2009Q4

REPORT INFORMATION
  Report Type: 
  Country: None (occurrence: None)
  Receive Date: 20091112
  Receipt Date: 20091102
  Transmission Date: 20100525
  Serious: Yes (Life-Threatening)
  Sender: FDA-Public Use
  Company Number: ADR43112009

PATIENT
  Age: 57 Year
  Sex: Male

DRUGS (6)
  1. SIMVASTATIN [Suspect]
     Indication: CARDIOVASCULAR DISORDER
     Dosage: 40 MG, ORAL
     Route: 048
     Dates: start: 20031001, end: 20040201
  2. SIMVASTATIN [Suspect]
     Indication: HYPERCHOLESTEROLAEMIA
     Dosage: 40 MG, ORAL
     Route: 048
     Dates: start: 20031001, end: 20040201
  3. BENDROFLUMETHIAZIDE [Concomitant]
  4. CANDESARTAN CILEXETIL [Concomitant]
  5. FOSAMAX [Concomitant]
  6. MESALAZINE [Concomitant]

REACTIONS (1)
  - COLITIS ULCERATIVE [None]
